FAERS Safety Report 13802250 (Version 1)
Quarter: 2017Q3

REPORT INFORMATION
  Report Type: Spontaneous
  Country: GB (occurrence: GB)
  Receive Date: 20170728
  Receipt Date: 20170728
  Transmission Date: 20171127
  Serious: Yes (Other)
  Sender: FDA-Public Use
  Company Number: GB-TORRENT-00015450

PATIENT
  Age: 51 Year
  Sex: Female
  Weight: 81 kg

DRUGS (6)
  1. DESOGESTREL [Concomitant]
     Active Substance: DESOGESTREL
  2. DEXAMETHASONE SODIUM PHOSPHATE. [Concomitant]
     Active Substance: DEXAMETHASONE SODIUM PHOSPHATE
  3. MONTELUKAST [Suspect]
     Active Substance: MONTELUKAST SODIUM
  4. AMITRIPTYLINE HYDROCHLORIDE. [Concomitant]
     Active Substance: AMITRIPTYLINE HYDROCHLORIDE
  5. VENTOLIN [Concomitant]
     Active Substance: ALBUTEROL SULFATE
  6. DICLOFENAC SODIUM. [Concomitant]
     Active Substance: DICLOFENAC SODIUM

REACTIONS (3)
  - Influenza like illness [Recovered/Resolved]
  - Depression [Recovered/Resolved]
  - Personality change [Unknown]

NARRATIVE: CASE EVENT DATE: 20170710
